FAERS Safety Report 7785903-2 (Version None)
Quarter: 2011Q3

REPORT INFORMATION
  Report Type: 
  Country: None (occurrence: None)
  Receive Date: 20110929
  Receipt Date: 20110926
  Transmission Date: 20111222
  Serious: Yes (Life-Threatening, Hospitalization, Disabling)
  Sender: FDA-Public Use
  Company Number: DE-SANOFI-AVENTIS-2011SA005859

PATIENT
  Age: 84 Year
  Sex: Female
  Weight: 60 kg

DRUGS (4)
  1. ARAVA [Suspect]
     Dosage: 1X10MG
     Route: 048
     Dates: end: 20100101
  2. METOPROLOL SUCCINATE [Concomitant]
     Route: 048
  3. TORSEMIDE [Concomitant]
     Route: 065
  4. PREDNISONE [Concomitant]
     Indication: ARTHRITIS
     Route: 065

REACTIONS (12)
  - HEART RATE INCREASED [None]
  - PELVIC FRACTURE [None]
  - TRANSAMINASES INCREASED [None]
  - FALL [None]
  - HYPOGLYCAEMIA [None]
  - JAUNDICE [None]
  - PLEURAL EFFUSION [None]
  - STAPHYLOCOCCUS TEST POSITIVE [None]
  - BLOOD BILIRUBIN INCREASED [None]
  - BLOOD PRESSURE INCREASED [None]
  - ENTEROCOCCUS TEST POSITIVE [None]
  - PROTEUS TEST POSITIVE [None]
